FAERS Safety Report 4729598-0 (Version None)
Quarter: 2005Q3

REPORT INFORMATION
  Report Type: 
  Country: None (occurrence: None)
  Receive Date: 20050728
  Receipt Date: 20050715
  Transmission Date: 20060218
  Serious: Yes (Other)
  Sender: FDA-Public Use
  Company Number: 215238

PATIENT
  Age: 49 Year
  Sex: Male
  Weight: 58 kg

DRUGS (13)
  1. RITUXAN [Suspect]
     Indication: NON-HODGKIN'S LYMPHOMA
     Dosage: 600 MG, INTRAVENOUS
     Route: 042
     Dates: start: 20040517, end: 20041018
  2. CYCLOPHOSPHAMIDE [Concomitant]
  3. DOXORUBICIN HCL [Concomitant]
  4. VINCRISTINE [Concomitant]
  5. PREDNISONE [Concomitant]
  6. HYDROCORTISONE SODIUM SUCCINATE [Concomitant]
  7. VENA (DIPHENHYDRAMINE HYDROCHLORIDE) [Concomitant]
  8. CALONAL (ACETAMINOPUPHEN) [Concomitant]
  9. ZOFRAN [Concomitant]
  10. MUCOSTA (REBAMIPIDE) [Concomitant]
  11. MAGNESIUM OXIDE (MAGNESIUM OXIDE) [Concomitant]
  12. DEPAS (ETIZOLAM) [Concomitant]
  13. UREA (UREA) [Concomitant]

REACTIONS (8)
  - ALANINE AMINOTRANSFERASE INCREASED [None]
  - ASPARTATE AMINOTRANSFERASE INCREASED [None]
  - CHILLS [None]
  - COUGH [None]
  - NEUTROPHIL COUNT DECREASED [None]
  - PRURITUS [None]
  - PYREXIA [None]
  - WHITE BLOOD CELL COUNT DECREASED [None]
